FAERS Safety Report 10009320 (Version 1)
Quarter: 2014Q1

REPORT INFORMATION
  Report Type: Spontaneous
  Country: US (occurrence: US)
  Receive Date: 20140313
  Receipt Date: 20140313
  Transmission Date: 20141002
  Serious: No
  Sender: FDA-Public Use
  Company Number: US-B.I. PHARMACEUTICALS,INC./RIDGEFIELD-2014-BI-09642BP

PATIENT
  Sex: Male
  Weight: 63.6 kg

DRUGS (4)
  1. TAMSULOSIN CAPSULES [Suspect]
     Indication: URINE FLOW DECREASED
     Route: 065
  2. CARDIVAS (CARVEDILOL) [Concomitant]
     Dosage: 12 MG
     Route: 065
  3. LISINOPRIL [Concomitant]
     Dosage: 20 MG
     Route: 065
  4. HYDROCHLOROTHIAZIDE [Concomitant]
     Dosage: 12.5 MG
     Route: 065

REACTIONS (1)
  - Adverse drug reaction [Unknown]
